FAERS Safety Report 22197214 (Version 1)
Quarter: 2023Q2

REPORT INFORMATION
  Report Type: Spontaneous
  Country: CN (occurrence: CN)
  Receive Date: 20230411
  Receipt Date: 20230411
  Transmission Date: 20230721
  Serious: Yes (Death, Life-Threatening, Other)
  Sender: FDA-Public Use
  Company Number: CN-SA-2023SA108992

PATIENT
  Age: 53 Year
  Sex: Female

DRUGS (9)
  1. CLOPIDOGREL BISULFATE [Suspect]
     Active Substance: CLOPIDOGREL BISULFATE
     Indication: Pulmonary embolism
     Dosage: UNK, ON DAY 12
  2. CLOPIDOGREL BISULFATE [Suspect]
     Active Substance: CLOPIDOGREL BISULFATE
     Indication: Deep vein thrombosis
  3. ASPIRIN [Suspect]
     Active Substance: ASPIRIN
     Indication: Pulmonary embolism
     Dosage: UNK, ON DAY 12,
  4. ASPIRIN [Suspect]
     Active Substance: ASPIRIN
     Indication: Deep vein thrombosis
  5. RIVAROXABAN [Suspect]
     Active Substance: RIVAROXABAN
     Indication: Pulmonary embolism
     Dosage: UNK, ON DAY 7
     Route: 048
  6. RIVAROXABAN [Suspect]
     Active Substance: RIVAROXABAN
     Indication: Deep vein thrombosis
     Dosage: UNK, ON DAY 13
  7. UNSPECIFIED INGREDIENT [Suspect]
     Active Substance: UNSPECIFIED INGREDIENT
     Indication: Pulmonary embolism
     Dosage: UNK, ON DAY 1
     Route: 058
  8. UNSPECIFIED INGREDIENT [Suspect]
     Active Substance: UNSPECIFIED INGREDIENT
     Indication: Thrombosis prophylaxis
     Dosage: UNK, ON DAY 10
     Route: 058
  9. UNSPECIFIED INGREDIENT [Suspect]
     Active Substance: UNSPECIFIED INGREDIENT
     Dosage: UNK, ON DAY 33, LOW DOSAGE OF HEPARIN WAS USED FOR FLUSHING FOR A FEW DAYS TO PREVENT THROMBOSIS

REACTIONS (3)
  - Gastrointestinal haemorrhage [Fatal]
  - Petechiae [Fatal]
  - Multiple organ dysfunction syndrome [Fatal]
